FAERS Safety Report 8923675 (Version 1)
Quarter: 2012Q4

REPORT INFORMATION
  Report Type: Spontaneous
  Country: US (occurrence: None)
  Receive Date: 20121109
  Receipt Date: 20121109
  Transmission Date: 20130627
  Serious: Yes (Other)
  Sender: FDA-Public Use
  Company Number: 2011S1000656

PATIENT
  Sex: Female

DRUGS (3)
  1. CUBICIN [Suspect]
     Dosage: 8  MG/KG; UNK; UNK
  2. ZOCOR [Concomitant]
  3. VANCOMYCIN [Concomitant]

REACTIONS (2)
  - Rhabdomyolysis [None]
  - Blood creatine phosphokinase increased [None]
